FAERS Safety Report 7951185-1 (Version None)
Quarter: 2011Q4

REPORT INFORMATION
  Report Type: 
  Country: None (occurrence: None)
  Receive Date: 20111201
  Receipt Date: 20111117
  Transmission Date: 20120403
  Serious: Yes (Hospitalization, Other)
  Sender: FDA-Public Use
  Company Number: PHHY2011DE95406

PATIENT
  Age: 53 Year
  Sex: Male
  Weight: 78 kg

DRUGS (10)
  1. SANDOSTATIN LAR [Suspect]
     Indication: CARCINOID SYNDROME
     Dosage: 30 MG, PER MONTHLY
     Route: 030
     Dates: start: 20101001
  2. METAMIZOLE [Concomitant]
     Indication: ABDOMINAL PAIN
     Dosage: 4000 MG, PER DAY
     Route: 048
     Dates: start: 20110601
  3. REVATIO [Suspect]
     Indication: PULMONARY HYPERTENSION
     Dosage: 60 MG, PER DAY
     Route: 048
     Dates: start: 20111011, end: 20111027
  4. OMEPRAZOLE [Concomitant]
     Indication: DYSPEPSIA
     Dosage: 20 MG, PER DAY
     Route: 048
     Dates: start: 20080101
  5. TEMISARTAN [Concomitant]
     Indication: HYPERTENSION
     Dosage: 80 MG, PER DAY
     Route: 048
     Dates: start: 20111011
  6. PANCREATIN TRIPLE STRENGTH CAP [Concomitant]
     Indication: CARCINOID SYNDROME
     Dosage: 120000 IU, PER DAY
     Route: 048
     Dates: start: 20101001
  7. SCOPOLAMINE [Concomitant]
     Indication: ABDOMINAL PAIN
     Dosage: 160 MG, PER DAY
     Route: 048
     Dates: start: 20110601
  8. HYDROCHLOROTHIAZIDE [Concomitant]
     Indication: HYPERTENSION
     Dosage: 6.25 MG, PER DAY
     Route: 048
     Dates: start: 20111011
  9. LOPERAMIDE HCL [Concomitant]
     Indication: CARCINOID SYNDROME
     Dosage: 12 MG, PER DAY
     Route: 048
     Dates: start: 20101001
  10. URSODIOL [Concomitant]
     Indication: CHOLELITHIASIS
     Dosage: 1000 MG, PER DAY
     Route: 048
     Dates: start: 20111007

REACTIONS (13)
  - SCINTILLATING SCOTOMA [None]
  - AGGRESSION [None]
  - MIGRAINE [None]
  - POSTERIOR REVERSIBLE ENCEPHALOPATHY SYNDROME [None]
  - HEADACHE [None]
  - CEREBROVASCULAR DISORDER [None]
  - PSYCHOTIC DISORDER [None]
  - NAUSEA [None]
  - TOXIC ENCEPHALOPATHY [None]
  - VOMITING [None]
  - CONFUSIONAL STATE [None]
  - AGITATION [None]
  - DELIRIUM [None]
